FAERS Safety Report 5205245-9 (Version None)
Quarter: 2006Q4

REPORT INFORMATION
  Report Type: 
  Country: None (occurrence: None)
  Receive Date: 20061027
  Receipt Date: 20050912
  Transmission Date: 20070319
  Serious: Yes (Other)
  Sender: FDA-Public Use
  Company Number: HQWYE198116JUL04

PATIENT
  Age: 79 Year
  Sex: Female
  Weight: 74.91 kg

DRUGS (6)
  1. PREMARIN [Suspect]
     Indication: MENOPAUSE
     Dosage: 0.625MG FREQUENCY NOT SPECIFIED
     Dates: start: 19730101, end: 20030101
  2. POTASSIUM (POTASSIUM) [Concomitant]
  3. LASIX [Concomitant]
  4. ASCORBIC ACID [Concomitant]
  5. CALCIUM (CALCIUM) [Concomitant]
  6. CLONAZEPAM [Concomitant]

REACTIONS (1)
  - BREAST CANCER [None]
